FAERS Safety Report 23931378 (Version 2)
Quarter: 2024Q3

REPORT INFORMATION
  Report Type: Spontaneous
  Country: JP (occurrence: JP)
  Receive Date: 20240603
  Receipt Date: 20240708
  Transmission Date: 20241017
  Serious: Yes (Other)
  Sender: TAKEDA
  Company Number: JP-TAKEDA-2024TUS053964

PATIENT
  Age: 66 Year
  Sex: Male
  Weight: 62 kg

DRUGS (9)
  1. LIALDA [Suspect]
     Active Substance: MESALAMINE
     Indication: Colitis ulcerative
     Dosage: 4800 MILLIGRAM, QD
     Route: 048
     Dates: start: 20200919
  2. BUDESONIDE [Suspect]
     Active Substance: BUDESONIDE
     Indication: Colitis ulcerative
     Dosage: 9 MILLIGRAM, QD
     Route: 048
     Dates: start: 20240110, end: 20240306
  3. CAROTEGRAST METHYL [Concomitant]
     Active Substance: CAROTEGRAST METHYL
     Indication: Colitis ulcerative
     Dosage: 2880 MILLIGRAM, QD
     Route: 048
     Dates: start: 20231213, end: 20240430
  4. RABEPRAZOLE SODIUM [Concomitant]
     Active Substance: RABEPRAZOLE SODIUM
     Indication: Gastrooesophageal reflux disease
     Dosage: 10 MILLIGRAM, QD
     Route: 048
     Dates: start: 20160122
  5. CANAGLIFLOZIN\TENELIGLIPTIN [Concomitant]
     Active Substance: CANAGLIFLOZIN\TENELIGLIPTIN
     Indication: Type 2 diabetes mellitus
     Dosage: 1 DOSAGE FORM, QD
     Route: 048
     Dates: start: 20221026
  6. EPINASTINE HYDROCHLORIDE [Concomitant]
     Active Substance: EPINASTINE HYDROCHLORIDE
     Indication: Rhinitis allergic
     Dosage: 20 MILLIGRAM, QD
     Route: 048
     Dates: start: 20140222
  7. SENNOSIDES [Concomitant]
     Active Substance: SENNOSIDES
     Indication: Constipation
     Dosage: 12 MILLIGRAM, QD
     Route: 048
     Dates: start: 20151124, end: 20231211
  8. SENNOSIDES [Concomitant]
     Active Substance: SENNOSIDES
     Dosage: UNK
     Route: 048
     Dates: start: 20240110, end: 20240501
  9. PENTASA [Concomitant]
     Active Substance: MESALAMINE
     Indication: Colitis ulcerative
     Dosage: 1 GRAM, QD
     Route: 054
     Dates: start: 20230325

REACTIONS (5)
  - Haematochezia [Recovered/Resolved]
  - Colitis ulcerative [Unknown]
  - Diarrhoea [Recovering/Resolving]
  - Blood glucose increased [Recovered/Resolved]
  - Mucous stools [Unknown]

NARRATIVE: CASE EVENT DATE: 20230201
